FAERS Safety Report 17733780 (Version 1)
Quarter: 2020Q2

REPORT INFORMATION
  Report Type: Spontaneous
  Country: US (occurrence: US)
  Receive Date: 20200501
  Receipt Date: 20200501
  Transmission Date: 20200714
  Serious: Yes (Hospitalization)
  Sender: FDA-Public Use
  Company Number: None

PATIENT
  Age: 45 Year
  Sex: Male
  Weight: 70.9 kg

DRUGS (5)
  1. METHOTREXATE. [Suspect]
     Active Substance: METHOTREXATE
     Dates: end: 20190729
  2. VINCRISTINE SULFATE. [Suspect]
     Active Substance: VINCRISTINE SULFATE
     Dates: end: 20190805
  3. DAUNORUBICIN [Suspect]
     Active Substance: DAUNORUBICIN
     Dates: end: 20190805
  4. CYTARABINE. [Suspect]
     Active Substance: CYTARABINE
     Dates: end: 20190716
  5. ONCASPAR [Suspect]
     Active Substance: PEGASPARGASE
     Dates: end: 20190801

REACTIONS (3)
  - Pulmonary embolism [None]
  - Gait inability [None]
  - Malaise [None]

NARRATIVE: CASE EVENT DATE: 20190808
